FAERS Safety Report 8609424-X (Version None)
Quarter: 2012Q3

REPORT INFORMATION
  Report Type: 
  Country: None (occurrence: None)
  Receive Date: 20120821
  Receipt Date: 20120815
  Transmission Date: 20120928
  Serious: No
  Sender: FDA-Public Use
  Company Number: BR-ABBOTT-12P-020-0937721-00

PATIENT
  Sex: Female
  Weight: 64 kg

DRUGS (11)
  1. CYCLOBENZAPRINE [Concomitant]
     Indication: ANKYLOSING SPONDYLITIS
  2. CLONAZEPAM [Concomitant]
     Indication: ANTIDEPRESSANT THERAPY
  3. FOLIC ACID [Concomitant]
     Indication: ANKYLOSING SPONDYLITIS
  4. HUMIRA [Suspect]
     Route: 050
     Dates: start: 20120802
  5. FAMOTIDINE [Concomitant]
     Indication: ANKYLOSING SPONDYLITIS
  6. METHOTREXATE [Concomitant]
     Indication: ANKYLOSING SPONDYLITIS
  7. TORAGESIC [Concomitant]
     Indication: PAIN
  8. CARISOPRODOL [Concomitant]
     Indication: ANKYLOSING SPONDYLITIS
  9. HUMIRA [Suspect]
     Indication: ANKYLOSING SPONDYLITIS
     Route: 058
     Dates: start: 20090301
  10. SERTRALINE HYDROCHLORIDE [Concomitant]
     Indication: ANTIDEPRESSANT THERAPY
     Dates: start: 20120422
  11. ESTRADIOL [Concomitant]
     Indication: HORMONE THERAPY

REACTIONS (3)
  - DEPRESSION [None]
  - PYREXIA [None]
  - ABSCESS [None]
